FAERS Safety Report 4464137-3 (Version None)
Quarter: 2004Q4

REPORT INFORMATION
  Report Type: 
  Country: None (occurrence: None)
  Receive Date: 20041001
  Receipt Date: 20040923
  Transmission Date: 20050328
  Serious: Yes (Life-Threatening, Hospitalization, Disabling, Other)
  Sender: FDA-Public Use
  Company Number: US-MERCK-0409USA02055

PATIENT
  Age: 51 Year
  Sex: Female

DRUGS (16)
  1. ALBUTEROL [Concomitant]
     Route: 065
  2. ALPRAZOLAM [Concomitant]
     Route: 065
  3. ASPIRIN [Concomitant]
     Route: 065
  4. TUMS [Concomitant]
     Route: 065
  5. NEXIUM [Concomitant]
     Route: 065
  6. ADVAIR DISKUS 100/50 [Concomitant]
     Route: 065
  7. MAXZIDE [Concomitant]
     Route: 065
  8. AVAPRO [Concomitant]
     Route: 065
  9. ROBAXIN [Concomitant]
     Route: 065
  10. DENAVIR [Concomitant]
     Route: 065
  11. METAMUCIL-2 [Concomitant]
     Route: 065
  12. ZOLOFT [Concomitant]
     Route: 065
  13. ZOCOR [Suspect]
     Indication: HYPERCHOLESTEROLAEMIA
     Route: 048
     Dates: end: 20031201
  14. ZOCOR [Suspect]
     Route: 048
     Dates: start: 20031201, end: 20040128
  15. TEMAZEPAM [Concomitant]
     Route: 065
  16. EFFEXOR XR [Concomitant]
     Route: 065

REACTIONS (11)
  - BLOOD CREATINE PHOSPHOKINASE INCREASED [None]
  - BLOOD CREATININE INCREASED [None]
  - CHEST PAIN [None]
  - DYSPNOEA [None]
  - HEPATIC ENZYME INCREASED [None]
  - INFLUENZA LIKE ILLNESS [None]
  - MUSCLE CRAMP [None]
  - MYALGIA [None]
  - RENAL FAILURE [None]
  - RENAL IMPAIRMENT [None]
  - URINE OUTPUT DECREASED [None]
